FAERS Safety Report 4999102-0 (Version None)
Quarter: 2006Q1

REPORT INFORMATION
  Report Type: 
  Country: None (occurrence: None)
  Receive Date: 20060315
  Receipt Date: 20051202
  Transmission Date: 20060701
  Serious: Yes (Other)
  Sender: FDA-Public Use
  Company Number: 423022

PATIENT
  Age: 43 Year
  Sex: Female
  Weight: 44.9 kg

DRUGS (2)
  1. BONIVA [Suspect]
     Indication: OSTEOPENIA
     Dosage: ORAL
     Route: 048
     Dates: start: 20051008, end: 20051008
  2. BIPHOSPHONATE (BISPHOSPHONATE NOS) [Concomitant]

REACTIONS (2)
  - MUSCLE SPASMS [None]
  - PARAESTHESIA [None]
